FAERS Safety Report 5942588-5 (Version None)
Quarter: 2008Q4

REPORT INFORMATION
  Report Type: 
  Country: None (occurrence: None)
  Receive Date: 20081103
  Receipt Date: 20081023
  Transmission Date: 20090506
  Serious: Yes (Hospitalization)
  Sender: FDA-Public Use
  Company Number: ADE2008-0361

PATIENT
  Age: 54 Year
  Sex: Male
  Weight: 70 kg

DRUGS (7)
  1. CIPROFLOXACIN [Suspect]
     Indication: BRONCHITIS
     Dosage: 500MG - BID - PO
     Route: 048
     Dates: start: 20080701
  2. CIPROFLOXACIN [Suspect]
     Indication: PROPHYLAXIS
     Dosage: 500MG - BID - PO
     Route: 048
     Dates: start: 20080701
  3. AZITHROMYCIN [Suspect]
     Indication: BRONCHITIS
     Dosage: 250MG - QD - PO
     Route: 048
     Dates: start: 20080701, end: 20080808
  4. AZITHROMYCIN [Suspect]
     Indication: PROPHYLAXIS
     Dosage: 250MG - QD - PO
     Route: 048
     Dates: start: 20080701, end: 20080808
  5. FLUOXETINE 20MG DAILY PO [Concomitant]
  6. SERETIDE [Concomitant]
  7. UNIPHYLLIN 200MG BID [Concomitant]

REACTIONS (1)
  - ADVERSE EVENT [None]
